FAERS Safety Report 8612494 (Version 4)
Quarter: 2012Q4

REPORT INFORMATION
  Report Type: Report from Study
  Country: FR (occurrence: FR)
  Receive Date: 20120613
  Receipt Date: 20121102
  Transmission Date: 20130627
  Serious: Yes (Hospitalization)
  Sender: FDA-Public Use
  Company Number: FR-ROCHE-1076971

PATIENT
  Age: 55 Year
  Sex: Male
  Weight: 56 kg

DRUGS (4)
  1. RITUXIMAB [Suspect]
     Indication: MANTLE CELL LYMPHOMA
     Route: 041
     Dates: start: 20110531, end: 20120402
  2. POLARAMINE [Concomitant]
     Indication: PROPHYLAXIS
     Dosage: 1 ampule
     Route: 030
     Dates: start: 20110531, end: 20120402
  3. PARACETAMOL [Concomitant]
     Indication: PROPHYLAXIS
     Route: 042
     Dates: start: 20110531, end: 20120402
  4. METHYLPREDNISOLONE [Concomitant]
     Indication: PROPHYLAXIS
     Route: 042
     Dates: start: 20110531, end: 20120402

REACTIONS (2)
  - Autoimmune thyroiditis [Not Recovered/Not Resolved]
  - Campylobacter infection [Recovered/Resolved]
